FAERS Safety Report 7998406-7 (Version None)
Quarter: 2011Q4

REPORT INFORMATION
  Report Type: 
  Country: None (occurrence: None)
  Receive Date: 20111221
  Receipt Date: 20110926
  Transmission Date: 20120403
  Serious: No
  Sender: FDA-Public Use
  Company Number: US-GLAXOSMITHKLINE-A0946022A

PATIENT
  Age: 49 Year
  Sex: Female

DRUGS (2)
  1. NIASPAN [Concomitant]
  2. LOVAZA [Suspect]
     Indication: BLOOD TRIGLYCERIDES INCREASED
     Dosage: 4CAP PER DAY
     Route: 048
     Dates: start: 20101001, end: 20110922

REACTIONS (2)
  - ILL-DEFINED DISORDER [None]
  - PAIN [None]
